FAERS Safety Report 25725560 (Version 1)
Quarter: 2025Q3

REPORT INFORMATION
  Report Type: Spontaneous
  Country: US (occurrence: US)
  Receive Date: 20250826
  Receipt Date: 20250826
  Transmission Date: 20251020
  Serious: Yes (Hospitalization)
  Sender: ROCHE
  Company Number: US-ROCHE-10000369188

PATIENT
  Age: 81 Year
  Sex: Female

DRUGS (10)
  1. XOLAIR [Suspect]
     Active Substance: OMALIZUMAB
     Indication: Asthma
     Route: 058
     Dates: start: 20220916
  2. ATORVASTATIN [Concomitant]
     Active Substance: ATORVASTATIN
  3. AVONEX [Concomitant]
     Active Substance: INTERFERON BETA-1A
  4. BAND-AID CLR MIS PLASTIC [Concomitant]
  5. CHLORHEX GLU SOL 0.12% [Concomitant]
  6. CIPROFLOXACIN [Concomitant]
     Active Substance: CIPROFLOXACIN
  7. CLINDAMYCIN HYDROCHLORIDE [Concomitant]
     Active Substance: CLINDAMYCIN HYDROCHLORIDE
  8. COMBIVENT [Concomitant]
     Active Substance: ALBUTEROL SULFATE\IPRATROPIUM BROMIDE
  9. ELIQUIS [Concomitant]
     Active Substance: APIXABAN
  10. FLOVENT HFA AER 44MCG [Concomitant]

REACTIONS (2)
  - Asthma [Unknown]
  - Off label use [Unknown]

NARRATIVE: CASE EVENT DATE: 20250816
